FAERS Safety Report 20490118 (Version 1)
Quarter: 2022Q1

REPORT INFORMATION
  Report Type: Spontaneous
  Country: US (occurrence: None)
  Receive Date: 20220217
  Receipt Date: 20220217
  Transmission Date: 20220423
  Serious: Yes (Life-Threatening, Hospitalization)
  Sender: FDA-Public Use
  Company Number: None

PATIENT
  Age: 18 Year
  Sex: Female

DRUGS (4)
  1. HUMIRA [Suspect]
     Active Substance: ADALIMUMAB
     Indication: Colitis ulcerative
     Dosage: 40MG OTHER SUBCUTANEOUS   ??DATES OF USE:?07/22/2022-02/13/2022
     Route: 058
     Dates: end: 20220212
  2. OMEPRAZOLE [Concomitant]
     Active Substance: OMEPRAZOLE
  3. MESALAMINE [Concomitant]
     Active Substance: MESALAMINE
  4. LORYNA [Concomitant]
     Active Substance: DROSPIRENONE\ETHINYL ESTRADIOL

REACTIONS (2)
  - Anaphylactic reaction [None]
  - Chest pain [None]

NARRATIVE: CASE EVENT DATE: 20220102
